FAERS Safety Report 25405735 (Version 1)
Quarter: 2025Q2

REPORT INFORMATION
  Report Type: Spontaneous
  Country: DE (occurrence: DE)
  Receive Date: 20250606
  Receipt Date: 20250606
  Transmission Date: 20250716
  Serious: Yes (Other)
  Sender: AUROBINDO
  Company Number: DE-BRISTOL-MYERS SQUIBB COMPANY-2024-148673

PATIENT
  Age: 58 Year
  Sex: Female
  Weight: 46 kg

DRUGS (7)
  1. OXALIPLATIN [Suspect]
     Active Substance: OXALIPLATIN
     Indication: Gastric cancer
     Route: 042
     Dates: start: 20240716, end: 20241111
  2. FLUOROURACIL [Suspect]
     Active Substance: FLUOROURACIL
     Indication: Gastric cancer
     Route: 042
     Dates: start: 20240716
  3. OPDIVO [Suspect]
     Active Substance: NIVOLUMAB
     Indication: Gastric cancer
     Route: 042
     Dates: start: 20240716
  4. PANTOPRAZOLE [Concomitant]
     Active Substance: PANTOPRAZOLE
     Indication: Prophylaxis
     Dosage: 40 MILLIGRAM, ONCE A DAY
     Route: 048
     Dates: start: 20240711
  5. DRONABINOL [Concomitant]
     Active Substance: DRONABINOL
     Indication: Gastric cancer
     Dosage: 75 MILLIGRAM, 3 TIMES A DAY
     Route: 048
     Dates: start: 20240712
  6. METAMIZOLE [Concomitant]
     Active Substance: METAMIZOLE
     Indication: Gastric cancer
     Route: 048
     Dates: start: 20240720
  7. ONDANSETRON [Concomitant]
     Active Substance: ONDANSETRON
     Indication: Gastric cancer
     Route: 048
     Dates: start: 20240720

REACTIONS (4)
  - Polyneuropathy [Recovering/Resolving]
  - Decreased appetite [Recovering/Resolving]
  - Mucosal inflammation [Unknown]
  - Vomiting [Not Recovered/Not Resolved]

NARRATIVE: CASE EVENT DATE: 20240819
